FAERS Safety Report 7304159-8 (Version None)
Quarter: 2011Q1

REPORT INFORMATION
  Report Type: 
  Country: None (occurrence: None)
  Receive Date: 20110221
  Receipt Date: 20110216
  Transmission Date: 20110831
  Serious: Yes (Hospitalization)
  Sender: FDA-Public Use
  Company Number: DE-ABBOTT-11P-062-0705842-00

PATIENT
  Age: 11 Year
  Sex: Female

DRUGS (2)
  1. SUXILEP [Suspect]
     Indication: EPILEPSY
     Route: 048
  2. ERGENYL CHRONO TABLETS [Suspect]
     Indication: EPILEPSY
     Route: 048
     Dates: start: 20040101, end: 20110101

REACTIONS (3)
  - DRUG INTERACTION [None]
  - ANTICONVULSANT DRUG LEVEL DECREASED [None]
  - EPILEPSY [None]
